FAERS Safety Report 21624392 (Version 1)
Quarter: 2022Q4

REPORT INFORMATION
  Report Type: Spontaneous
  Country: US (occurrence: US)
  Receive Date: 20221121
  Receipt Date: 20221121
  Transmission Date: 20230112
  Serious: Yes (Other)
  Sender: FDA-Public Use
  Company Number: US-BRACCO-2022US02621

PATIENT
  Age: 68 Year
  Sex: Female

DRUGS (5)
  1. LUMASON [Suspect]
     Active Substance: SULFUR HEXAFLUORIDE
     Indication: Echocardiogram
     Dosage: 1 ML, SINGLE
     Route: 042
     Dates: start: 20220629, end: 20220629
  2. LUMASON [Suspect]
     Active Substance: SULFUR HEXAFLUORIDE
     Indication: Echocardiogram
     Dosage: 1 ML, SINGLE
     Route: 042
     Dates: start: 20220629, end: 20220629
  3. LUMASON [Suspect]
     Active Substance: SULFUR HEXAFLUORIDE
     Indication: Echocardiogram
     Dosage: 1 ML, SINGLE
     Route: 042
     Dates: start: 20220629, end: 20220629
  4. ASPIRIN [Concomitant]
     Active Substance: ASPIRIN
     Dosage: 81 MG
  5. EFFIENT [Concomitant]
     Active Substance: PRASUGREL HYDROCHLORIDE
     Dosage: 10 MG

REACTIONS (5)
  - Hypotension [Recovered/Resolved]
  - Retching [Recovered/Resolved]
  - Vomiting [Recovered/Resolved]
  - Hypoaesthesia oral [Recovered/Resolved]
  - Paraesthesia [Recovered/Resolved]

NARRATIVE: CASE EVENT DATE: 20220629
